FAERS Safety Report 7862128 (Version 2)
Quarter: 2013Q2

REPORT INFORMATION
  Report Type: Report from Study
  Country: MX (occurrence: MX)
  Receive Date: 20110318
  Receipt Date: 20130528
  Transmission Date: 20140414
  Serious: Yes (Hospitalization)
  Sender: FDA-Public Use
  Company Number: PHHY2011MX18656

PATIENT
  Age: 73 Year
  Sex: Female
  Weight: 71 kg

DRUGS (1)
  1. CO-DIOVAN [Suspect]
     Indication: HYPERTENSION
     Dosage: 1 DF, QD
     Dates: start: 200701, end: 20110121

REACTIONS (4)
  - Cerebral haemorrhage [Recovering/Resolving]
  - Speech disorder [Recovering/Resolving]
  - Thrombosis [Recovering/Resolving]
  - Somnolence [Recovering/Resolving]
